FAERS Safety Report 14001492 (Version 3)
Quarter: 2020Q1

REPORT INFORMATION
  Report Type: Spontaneous
  Country: US (occurrence: US)
  Receive Date: 20170922
  Receipt Date: 20200330
  Transmission Date: 20200409
  Serious: Yes (Death, Hospitalization)
  Sender: FDA-Public Use
  Company Number: US-JNJFOC-20170902223

PATIENT
  Age: 73 Year
  Sex: Male

DRUGS (3)
  1. XARELTO [Suspect]
     Active Substance: RIVAROXABAN
     Indication: CEREBROVASCULAR ACCIDENT PROPHYLAXIS
     Route: 048
     Dates: start: 201205, end: 201401
  2. XARELTO [Suspect]
     Active Substance: RIVAROXABAN
     Route: 048
     Dates: start: 2016, end: 20161227
  3. XARELTO [Suspect]
     Active Substance: RIVAROXABAN
     Indication: ATRIAL FIBRILLATION
     Route: 048
     Dates: start: 20140123, end: 201604

REACTIONS (6)
  - Epistaxis [Recovering/Resolving]
  - Acute respiratory failure [Fatal]
  - Off label use [Unknown]
  - Prescribed underdose [Unknown]
  - Upper gastrointestinal haemorrhage [Recovering/Resolving]
  - Haemorrhagic stroke [Fatal]

NARRATIVE: CASE EVENT DATE: 201205
